FAERS Safety Report 19773914 (Version 1)
Quarter: 2021Q3

REPORT INFORMATION
  Report Type: Spontaneous
  Country: CR (occurrence: CR)
  Receive Date: 20210831
  Receipt Date: 20210831
  Transmission Date: 20211014
  Serious: Yes (Other)
  Sender: FDA-Public Use
  Company Number: CR-PFIZER INC-202101081893

PATIENT
  Age: 86 Year
  Sex: Male

DRUGS (1)
  1. LIPITOR [Suspect]
     Active Substance: ATORVASTATIN CALCIUM
     Dosage: 80 MG, DAILY
     Route: 048

REACTIONS (6)
  - Skull fracture [Unknown]
  - Deafness [Unknown]
  - Amnesia [Unknown]
  - Aphasia [Unknown]
  - Fall [Unknown]
  - Myocardial infarction [Unknown]
